FAERS Safety Report 21763468 (Version 1)
Quarter: 2022Q4

REPORT INFORMATION
  Report Type: Spontaneous
  Country: US (occurrence: US)
  Receive Date: 20221221
  Receipt Date: 20221221
  Transmission Date: 20230112
  Serious: No
  Sender: FDA-Public Use
  Company Number: US-BEH-2022153344

PATIENT
  Sex: Male
  Weight: 77.098 kg

DRUGS (18)
  1. HIZENTRA [Suspect]
     Active Substance: HUMAN IMMUNOGLOBULIN G
     Dosage: 7 GRAM, BIW
     Route: 058
     Dates: start: 20150930
  2. HIZENTRA [Suspect]
     Active Substance: HUMAN IMMUNOGLOBULIN G
     Dosage: UNK
     Route: 058
  3. HIZENTRA [Suspect]
     Active Substance: HUMAN IMMUNOGLOBULIN G
     Dosage: UNK
     Route: 058
  4. HIZENTRA [Suspect]
     Active Substance: HUMAN IMMUNOGLOBULIN G
     Dosage: UNK
     Route: 058
  5. ACETAMINOPHEN [Concomitant]
     Active Substance: ACETAMINOPHEN
  6. DIPHENHYDRAMINE [Concomitant]
     Active Substance: DIPHENHYDRAMINE
  7. LIDOCAINE [Concomitant]
     Active Substance: LIDOCAINE
  8. EPINEPHRINE [Concomitant]
     Active Substance: EPINEPHRINE
  9. CRESTOR [Concomitant]
     Active Substance: ROSUVASTATIN CALCIUM
  10. CORTISONE [Concomitant]
     Active Substance: CORTISONE
  11. IBUPROFEN [Concomitant]
     Active Substance: IBUPROFEN
  12. ASPIRIN [Concomitant]
     Active Substance: ASPIRIN
  13. OREGANO LEAF OIL [Concomitant]
     Active Substance: OREGANO LEAF OIL
  14. AMPHOTERICIN B [Concomitant]
     Active Substance: AMPHOTERICIN B
  15. BIOTIN [Concomitant]
     Active Substance: BIOTIN
  16. PSYLLIUM HUSKS [Concomitant]
     Active Substance: PSYLLIUM HUSK
  17. KLOR-CON [Concomitant]
     Active Substance: POTASSIUM CHLORIDE
  18. VITAMINS NOS [Concomitant]
     Active Substance: VITAMINS

REACTIONS (3)
  - No adverse event [Unknown]
  - Product storage error [Unknown]
  - Discomfort [Unknown]
